FAERS Safety Report 7264602-X (Version None)
Quarter: 2011Q1

REPORT INFORMATION
  Report Type: 
  Country: None (occurrence: None)
  Receive Date: 20110131
  Receipt Date: 20110124
  Transmission Date: 20110831
  Serious: No
  Sender: FDA-Public Use
  Company Number: US-PFIZER INC-2011016959

PATIENT
  Sex: Female
  Weight: 67.574 kg

DRUGS (5)
  1. MICARDIS [Concomitant]
     Dosage: 80 MG, UNK
  2. CELEBREX [Suspect]
     Indication: BUNION
     Dosage: 200 MG, DAILY
     Route: 048
     Dates: start: 20080101
  3. CELEBREX [Suspect]
     Indication: FIBROMYALGIA
  4. CELEBREX [Suspect]
     Indication: PAIN
  5. ATENOLOL [Concomitant]
     Dosage: UNK

REACTIONS (2)
  - RASH [None]
  - PRURITUS [None]
